FAERS Safety Report 13794292 (Version 1)
Quarter: 2017Q3

REPORT INFORMATION
  Report Type: Spontaneous
  Country: US (occurrence: US)
  Receive Date: 20170726
  Receipt Date: 20170726
  Transmission Date: 20171127
  Serious: Yes (Other)
  Sender: FDA-Public Use
  Company Number: US-SUN PHARMACEUTICAL INDUSTRIES LTD-2017US-145999

PATIENT
  Age: 21 Year
  Sex: Male

DRUGS (3)
  1. ETOPOSIDE. [Suspect]
     Active Substance: ETOPOSIDE
     Indication: TESTICULAR CANCER METASTATIC
     Dosage: 5 CYCLES
     Route: 042
  2. GRANULOCYTE COLONY STIMULATING FACTOR [Concomitant]
     Active Substance: GRANULOCYTE COLONY-STIMULATING FACTOR NOS
     Indication: TESTICULAR CANCER METASTATIC
     Dosage: PER DAY; 5 CYCLES
     Route: 065
  3. CARBOPLATIN. [Suspect]
     Active Substance: CARBOPLATIN
     Indication: TESTICULAR CANCER METASTATIC
     Dosage: AUC = 8; 5 CYCLES
     Route: 042

REACTIONS (1)
  - Clostridium difficile colitis [Recovered/Resolved]
